FAERS Safety Report 15961028 (Version 2)
Quarter: 2019Q1

REPORT INFORMATION
  Report Type: Report from Study
  Country: DE (occurrence: DE)
  Receive Date: 20190214
  Receipt Date: 20190304
  Transmission Date: 20190417
  Serious: Yes (Other)
  Sender: FDA-Public Use
  Company Number: DE-MYLANLABS-2019M1013153

PATIENT
  Age: 27 Year
  Sex: Female

DRUGS (2)
  1. METHOTREXATE. [Suspect]
     Active Substance: METHOTREXATE
     Indication: RHEUMATOID ARTHRITIS
     Dosage: 20 MILLIGRAM
     Route: 065
  2. RITUXIMAB. [Suspect]
     Active Substance: RITUXIMAB
     Indication: RHEUMATOID ARTHRITIS
     Dosage: 1000 MILLIGRAM
     Route: 065
     Dates: start: 201707

REACTIONS (7)
  - Leukopenia [Unknown]
  - Autoimmune thyroiditis [Unknown]
  - Depressed mood [Unknown]
  - Gastritis [Unknown]
  - Sleep disorder [Unknown]
  - Infusion related reaction [Unknown]
  - Lupus nephritis [Unknown]

NARRATIVE: CASE EVENT DATE: 20170705
